FAERS Safety Report 8260051-6 (Version None)
Quarter: 2012Q2

REPORT INFORMATION
  Report Type: 
  Country: None (occurrence: None)
  Receive Date: 20120404
  Receipt Date: 20120402
  Transmission Date: 20120825
  Serious: No
  Sender: FDA-Public Use
  Company Number: US-BAYER-2012-032186

PATIENT
  Sex: Male

DRUGS (3)
  1. SALMON [Concomitant]
  2. ASPIRIN [Concomitant]
  3. LEVITRA [Suspect]
     Indication: ERECTILE DYSFUNCTION
     Dosage: 10 MG, TIW
     Dates: start: 20070101, end: 20120402

REACTIONS (4)
  - GENITAL DISCOMFORT [None]
  - PAIN [None]
  - HEART RATE INCREASED [None]
  - URTICARIA [None]
